FAERS Safety Report 18546277 (Version 1)
Quarter: 2020Q4

REPORT INFORMATION
  Report Type: Spontaneous
  Country: US (occurrence: US)
  Receive Date: 20201125
  Receipt Date: 20201125
  Transmission Date: 20210114
  Serious: No
  Sender: FDA-Public Use
  Company Number: US-PFIZER INC-2020465417

PATIENT
  Age: 70 Year
  Sex: Female
  Weight: 81.63 kg

DRUGS (1)
  1. GABAPENTIN. [Suspect]
     Active Substance: GABAPENTIN
     Dosage: UNK

REACTIONS (4)
  - Vomiting [Unknown]
  - Dizziness [Unknown]
  - Drug hypersensitivity [Unknown]
  - Nausea [Unknown]
